FAERS Safety Report 15464086 (Version 1)
Quarter: 2018Q4

REPORT INFORMATION
  Report Type: Spontaneous
  Country: PT (occurrence: PT)
  Receive Date: 20181004
  Receipt Date: 20181004
  Transmission Date: 20190204
  Serious: Yes (Hospitalization)
  Sender: FDA-Public Use
  Company Number: PT-MYLANLABS-2018M1072648

PATIENT
  Age: 59 Year
  Sex: Female

DRUGS (2)
  1. BUDESONIDE. [Suspect]
     Active Substance: BUDESONIDE
     Indication: RHINITIS
     Route: 055
  2. FORMOTEROL [Concomitant]
     Active Substance: FORMOTEROL
     Indication: RHINITIS
     Dosage: 4.5 ?G, UNK
     Route: 055

REACTIONS (2)
  - Type I hypersensitivity [Unknown]
  - Type IV hypersensitivity reaction [Unknown]
